FAERS Safety Report 8128959-X (Version None)
Quarter: 2012Q1

REPORT INFORMATION
  Report Type: 
  Country: None (occurrence: None)
  Receive Date: 20120210
  Receipt Date: 20110628
  Transmission Date: 20120608
  Serious: No
  Sender: FDA-Public Use
  Company Number: US-BRISTOL-MYERS SQUIBB COMPANY-15861230

PATIENT
  Age: 57 Year
  Sex: Female
  Weight: 130 kg

DRUGS (1)
  1. ORENCIA [Suspect]
     Dosage: MAR,APR AND MAY2011;10MG/KG(Q WEEK 0, 2, 4 AND THEN Q 4 WK)
     Dates: start: 20110201

REACTIONS (1)
  - OVERDOSE [None]
